FAERS Safety Report 11301915 (Version 1)
Quarter: 2015Q3

REPORT INFORMATION
  Report Type: Spontaneous
  Country: US (occurrence: US)
  Receive Date: 20150722
  Receipt Date: 20150722
  Transmission Date: 20151125
  Serious: No
  Sender: FDA-Public Use
  Company Number: US-ELI_LILLY_AND_COMPANY-US_990421440

PATIENT
  Age: 62 Year
  Sex: Female
  Weight: 70.46 kg

DRUGS (6)
  1. PREMARIN VAGINAL [Concomitant]
     Active Substance: ESTROGENS, CONJUGATED
     Dosage: UNK, UNKNOWN
     Route: 067
     Dates: start: 19990421
  2. EVISTA [Suspect]
     Active Substance: RALOXIFENE HYDROCHLORIDE
     Dosage: 60 MG, DAILY (1/D)
     Route: 048
     Dates: start: 1992, end: 200512
  3. FOSAMAX [Concomitant]
     Active Substance: ALENDRONATE SODIUM
     Indication: OSTEOPOROSIS
     Dosage: UNK, DAILY (1/D)
     Route: 048
  4. MIACALCIN [Concomitant]
     Active Substance: CALCITONIN SALMON
     Indication: OSTEOPOROSIS
     Dosage: UNK, UNKNOWN
  5. DRIXORAL [Concomitant]
     Active Substance: DEXBROMPHENIRAMINE MALEATE\PSEUDOEPHEDRINE SULFATE
     Indication: MULTIPLE ALLERGIES
     Dosage: 1 UNK, UNKNOWN
     Route: 048
     Dates: start: 19990907
  6. EVISTA [Suspect]
     Active Substance: RALOXIFENE HYDROCHLORIDE
     Indication: OSTEOPOROSIS
     Dates: end: 20080506

REACTIONS (17)
  - Pain in extremity [Recovered/Resolved]
  - Weight increased [Unknown]
  - Fall [Recovered/Resolved]
  - Arthritis [Unknown]
  - Dyspepsia [Unknown]
  - Lower extremity mass [Recovering/Resolving]
  - Limb deformity [Not Recovered/Not Resolved]
  - Scar [Unknown]
  - Haematoma [Recovering/Resolving]
  - Flatulence [Unknown]
  - Skin discolouration [Not Recovered/Not Resolved]
  - Oedema peripheral [Recovering/Resolving]
  - Vaginal discharge [Recovered/Resolved]
  - Increased appetite [Unknown]
  - Constipation [Recovered/Resolved]
  - Nervousness [Unknown]
  - Fluid retention [Unknown]

NARRATIVE: CASE EVENT DATE: 1998
